FAERS Safety Report 11028345 (Version 1)
Quarter: 2015Q2

REPORT INFORMATION
  Report Type: Spontaneous
  Country: US (occurrence: US)
  Receive Date: 20150414
  Receipt Date: 20150414
  Transmission Date: 20150821
  Serious: No
  Sender: FDA-Public Use
  Company Number: US-ELI_LILLY_AND_COMPANY-US201504003400

PATIENT
  Age: 57 Year
  Sex: Male
  Weight: 81.63 kg

DRUGS (1)
  1. HUMALOG [Suspect]
     Active Substance: INSULIN LISPRO
     Indication: PRODUCT USED FOR UNKNOWN INDICATION
     Dosage: UNK, PRN
     Route: 058

REACTIONS (5)
  - Infusion site scar [Unknown]
  - Abdominal distension [Unknown]
  - Blood glucose increased [Unknown]
  - Blood potassium increased [Unknown]
  - Fatigue [Unknown]

NARRATIVE: CASE EVENT DATE: 20150308
